FAERS Safety Report 16144476 (Version 2)
Quarter: 2020Q2

REPORT INFORMATION
  Report Type: Report from Study
  Country: None (occurrence: BR)
  Receive Date: 20190401
  Receipt Date: 20200401
  Transmission Date: 20200713
  Serious: Yes (Other)
  Sender: FDA-Public Use
  Company Number: BR-ABBVIE-19K-020-2726994-00

PATIENT
  Sex: Female
  Weight: 60 kg

DRUGS (10)
  1. HUMIRA [Suspect]
     Active Substance: ADALIMUMAB
     Route: 058
     Dates: end: 20200304
  2. HUMIRA [Suspect]
     Active Substance: ADALIMUMAB
     Route: 058
     Dates: start: 2018, end: 201808
  3. HUMIRA [Suspect]
     Active Substance: ADALIMUMAB
     Indication: HIDRADENITIS
     Dosage: LOADING DOSE - WEEK 0
     Route: 058
     Dates: start: 201807, end: 201807
  4. BACTRIM [Concomitant]
     Active Substance: SULFAMETHOXAZOLE\TRIMETHOPRIM
     Indication: PRODUCT USED FOR UNKNOWN INDICATION
  5. PAROXETINE. [Concomitant]
     Active Substance: PAROXETINE
     Indication: DEPRESSION
  6. ESCITALOPRAM [Suspect]
     Active Substance: ESCITALOPRAM OXALATE
     Indication: MOOD SWINGS
  7. PAROXETINE. [Concomitant]
     Active Substance: PAROXETINE
     Indication: MOOD SWINGS
  8. HUMIRA [Suspect]
     Active Substance: ADALIMUMAB
     Dosage: LOADING DOSE - WEEK 2
     Route: 058
     Dates: start: 2018, end: 2018
  9. ESCITALOPRAM [Suspect]
     Active Substance: ESCITALOPRAM OXALATE
     Indication: DEPRESSION
     Route: 048
  10. DIOVAN [Concomitant]
     Active Substance: VALSARTAN
     Indication: HYPERTENSION

REACTIONS (9)
  - Leiomyoma [Unknown]
  - Procedural haemorrhage [Unknown]
  - Nephrolithiasis [Unknown]
  - Hidradenitis [Not Recovered/Not Resolved]
  - Blood iron decreased [Unknown]
  - Dyspnoea [Unknown]
  - Breast cancer in situ [Unknown]
  - Weight decreased [Unknown]
  - Intestinal mass [Unknown]

NARRATIVE: CASE EVENT DATE: 20181120
